FAERS Safety Report 8278663-2 (Version None)
Quarter: 2012Q2

REPORT INFORMATION
  Report Type: 
  Country: None (occurrence: None)
  Receive Date: 20120412
  Receipt Date: 20111209
  Transmission Date: 20120825
  Serious: No
  Sender: FDA-Public Use
  Company Number: US-ASTRAZENECA-2011SE41632

PATIENT
  Age: 56 Year
  Sex: Female

DRUGS (2)
  1. ZOMIG [Suspect]
     Route: 048
  2. NEXIUM [Suspect]
     Route: 048

REACTIONS (7)
  - HELICOBACTER INFECTION [None]
  - PAIN [None]
  - DRUG DOSE OMISSION [None]
  - MIGRAINE [None]
  - MENTAL IMPAIRMENT [None]
  - VERTIGO [None]
  - GASTROOESOPHAGEAL REFLUX DISEASE [None]
